FAERS Safety Report 15526776 (Version 7)
Quarter: 2019Q2

REPORT INFORMATION
  Report Type: Report from Study
  Country: US (occurrence: US)
  Receive Date: 20181018
  Receipt Date: 20190405
  Transmission Date: 20190711
  Serious: Yes (Hospitalization, Disabling, Other)
  Sender: FDA-Public Use
  Company Number: US-SA-2017SA052676

PATIENT
  Age: 32 Year
  Sex: Female

DRUGS (4)
  1. TYSABRI [Concomitant]
     Active Substance: NATALIZUMAB
     Dosage: UNK
     Route: 065
     Dates: start: 201811
  2. CYCLOPHOSPHAMIDE. [Suspect]
     Active Substance: CYCLOPHOSPHAMIDE
     Dosage: 1000 MG, BID
     Route: 041
     Dates: start: 20180215, end: 20180915
  3. ALEMTUZUMAB [Suspect]
     Active Substance: ALEMTUZUMAB
     Indication: RELAPSING-REMITTING MULTIPLE SCLEROSIS
     Dosage: 12 MG,QD
     Route: 041
     Dates: start: 20170306, end: 20170310
  4. CYCLOPHOSPHAMIDE. [Suspect]
     Active Substance: CYCLOPHOSPHAMIDE
     Dosage: 50 MG, BID
     Route: 048
     Dates: start: 20180215, end: 20180915

REACTIONS (38)
  - Hospitalisation [Not Recovered/Not Resolved]
  - Autoimmune disorder [Unknown]
  - Wheelchair user [Unknown]
  - Poor quality sleep [Not Recovered/Not Resolved]
  - Dysarthria [Unknown]
  - Central nervous system lesion [Unknown]
  - Pain in extremity [Not Recovered/Not Resolved]
  - Peroneal nerve palsy [Not Recovered/Not Resolved]
  - Intention tremor [Unknown]
  - Immune thrombocytopenic purpura [Unknown]
  - Delirium [Unknown]
  - Impaired work ability [Not Recovered/Not Resolved]
  - Musculoskeletal pain [Unknown]
  - Spleen disorder [Unknown]
  - Dyspnoea [Not Recovered/Not Resolved]
  - Optic nerve disorder [Unknown]
  - Nuclear magnetic resonance imaging abnormal [Unknown]
  - Quadriparesis [Unknown]
  - Band sensation [Unknown]
  - Urinary tract infection [Unknown]
  - Decreased appetite [Not Recovered/Not Resolved]
  - Ataxia [Unknown]
  - Musculoskeletal disorder [Unknown]
  - Bedridden [Not Recovered/Not Resolved]
  - Cerebellar syndrome [Unknown]
  - Fatigue [Not Recovered/Not Resolved]
  - Gait disturbance [Not Recovered/Not Resolved]
  - General physical health deterioration [Not Recovered/Not Resolved]
  - Rash [Not Recovered/Not Resolved]
  - Cognitive disorder [Unknown]
  - Nystagmus [Unknown]
  - Visual impairment [Unknown]
  - Asthenia [Unknown]
  - Brain stem syndrome [Unknown]
  - Uhthoff^s phenomenon [Unknown]
  - Tibia fracture [Unknown]
  - Humerus fracture [Unknown]
  - Herpes zoster [Not Recovered/Not Resolved]

NARRATIVE: CASE EVENT DATE: 2017
